FAERS Safety Report 6643328-7 (Version None)
Quarter: 2010Q1

REPORT INFORMATION
  Report Type: 
  Country: None (occurrence: None)
  Receive Date: 20100319
  Receipt Date: 20100309
  Transmission Date: 20100710
  Serious: Yes (Hospitalization)
  Sender: FDA-Public Use
  Company Number: BE-BAUSCH-2009BL006642

PATIENT
  Age: 74 Year
  Sex: Male

DRUGS (1)
  1. ARTEOPTIC LA 2% [Suspect]
     Indication: GLAUCOMA
     Route: 047
     Dates: start: 20090901, end: 20091101

REACTIONS (3)
  - ABDOMINAL PAIN [None]
  - ERECTILE DYSFUNCTION [None]
  - NAUSEA [None]
